FAERS Safety Report 7676598-7 (Version None)
Quarter: 2011Q3

REPORT INFORMATION
  Report Type: 
  Country: None (occurrence: None)
  Receive Date: 20110811
  Receipt Date: 20110808
  Transmission Date: 20111222
  Serious: Yes (Other)
  Sender: FDA-Public Use
  Company Number: JP-CEPHALON-US021567

PATIENT
  Sex: Female

DRUGS (2)
  1. MODAFINIL [Suspect]
     Indication: NARCOLEPSY
     Route: 048
     Dates: start: 20070714, end: 20070727
  2. MODAFINIL [Suspect]
     Route: 048
     Dates: start: 20070728, end: 20070803

REACTIONS (5)
  - HYPNAGOGIC HALLUCINATION [None]
  - INSOMNIA [None]
  - NIGHTMARE [None]
  - ALTERED STATE OF CONSCIOUSNESS [None]
  - CATAPLEXY [None]
